FAERS Safety Report 11001447 (Version 1)
Quarter: 2015Q2

REPORT INFORMATION
  Report Type: Report from Study
  Country: US (occurrence: US)
  Receive Date: 20150408
  Receipt Date: 20150408
  Transmission Date: 20150821
  Serious: Yes (Other)
  Sender: FDA-Public Use
  Company Number: US-INTERMUNE, INC.-201503IM012829

PATIENT
  Age: 76 Year
  Sex: Female

DRUGS (14)
  1. ESBRIET [Suspect]
     Active Substance: PIRFENIDONE
     Dosage: 801 MG
     Route: 048
     Dates: start: 20150217
  2. VITAMIN C [Concomitant]
     Active Substance: ASCORBIC ACID
  3. ESBRIET [Suspect]
     Active Substance: PIRFENIDONE
     Dosage: 2304
     Route: 048
     Dates: start: 2015
  4. COPPER [Concomitant]
     Active Substance: COPPER
  5. VITAMIN A [Concomitant]
     Active Substance: VITAMIN A
  6. VITAMIN E [Concomitant]
     Active Substance: .ALPHA.-TOCOPHEROL
  7. VITAMIN D [Concomitant]
     Active Substance: CHOLECALCIFEROL
  8. LOSARTAN AND HYDROCHLOROTHIAZIDE [Concomitant]
     Active Substance: HYDROCHLOROTHIAZIDE\LOSARTAN POTASSIUM
  9. IRON [Concomitant]
     Active Substance: IRON
  10. ESBRIET [Suspect]
     Active Substance: PIRFENIDONE
     Route: 048
     Dates: end: 2015
  11. ESBRIET [Suspect]
     Active Substance: PIRFENIDONE
     Dosage: 1602 MG
     Route: 048
     Dates: start: 2015
  12. ZINC [Concomitant]
     Active Substance: ZINC\ZINC CHLORIDE
  13. OMEPRAZOLE. [Concomitant]
     Active Substance: OMEPRAZOLE
  14. CALCIUM [Concomitant]
     Active Substance: CALCIUM

REACTIONS (7)
  - Paralysis [Not Recovered/Not Resolved]
  - Somnolence [Not Recovered/Not Resolved]
  - Headache [Not Recovered/Not Resolved]
  - Product label issue [Unknown]
  - Cough [Unknown]
  - Feeling abnormal [Not Recovered/Not Resolved]
  - Diarrhoea [Not Recovered/Not Resolved]

NARRATIVE: CASE EVENT DATE: 2015
